FAERS Safety Report 11713912 (Version 1)
Quarter: 2015Q4

REPORT INFORMATION
  Report Type: Spontaneous
  Country: US (occurrence: None)
  Receive Date: 20151106
  Receipt Date: 20151106
  Transmission Date: 20160304
  Serious: Yes (Life-Threatening, Hospitalization)
  Sender: FDA-Public Use
  Company Number: None

PATIENT
  Age: 63 Year
  Sex: Male
  Weight: 88 kg

DRUGS (1)
  1. ANAKINRA [Suspect]
     Active Substance: ANAKINRA
     Indication: SYSTEMIC LUPUS ERYTHEMATOSUS
     Route: 058
     Dates: start: 20091102, end: 20100101

REACTIONS (4)
  - Cellulitis staphylococcal [None]
  - Immunosuppression [None]
  - Finger amputation [None]
  - Leukopenia [None]

NARRATIVE: CASE EVENT DATE: 20100101
